FAERS Safety Report 7798042-1 (Version None)
Quarter: 2011Q4

REPORT INFORMATION
  Report Type: 
  Country: None (occurrence: None)
  Receive Date: 20111004
  Receipt Date: 20111004
  Transmission Date: 20120403
  Serious: Yes (Other)
  Sender: FDA-Public Use
  Company Number: None

PATIENT
  Sex: Female
  Weight: 56.6996 kg

DRUGS (1)
  1. VIVELLE-DOT [Suspect]
     Indication: HORMONE REPLACEMENT THERAPY
     Dosage: 0.075 MG X 2 PER WEEK TRANSDERMAL
     Route: 062
     Dates: start: 19980101

REACTIONS (10)
  - BLOOD OESTROGEN DECREASED [None]
  - FEELING ABNORMAL [None]
  - HOT FLUSH [None]
  - NIGHT SWEATS [None]
  - CRYING [None]
  - PRODUCT QUALITY ISSUE [None]
  - IRRITABILITY [None]
  - ANXIETY [None]
  - MENOPAUSAL SYMPTOMS [None]
  - DRUG INEFFECTIVE [None]
